FAERS Safety Report 9469652 (Version 1)
Quarter: 2013Q3

REPORT INFORMATION
  Report Type: Spontaneous
  Country: US (occurrence: US)
  Receive Date: 20130822
  Receipt Date: 20130822
  Transmission Date: 20140515
  Serious: Yes (Other)
  Sender: FDA-Public Use
  Company Number: 2013SP005928

PATIENT
  Age: 22 Year
  Sex: Female
  Weight: 42.9 kg

DRUGS (6)
  1. VANCOMYCIN [Suspect]
     Indication: INFECTION
     Route: 042
  2. VANCOMYCIN [Suspect]
     Indication: INFECTION
     Route: 042
  3. LEVETIRACETAM [Suspect]
     Indication: CONVULSION
     Route: 042
  4. LEVETIRACETAM [Suspect]
     Indication: CONVULSION
     Route: 042
  5. LEVETIRACETAM [Suspect]
     Indication: CONVULSION
     Route: 042
  6. LEVETIRACETAM [Suspect]
     Indication: CONVULSION
     Route: 042

REACTIONS (1)
  - Drug clearance increased [Unknown]
